FAERS Safety Report 8347378-4 (Version None)
Quarter: 2012Q2

REPORT INFORMATION
  Report Type: 
  Country: None (occurrence: None)
  Receive Date: 20120509
  Receipt Date: 20120503
  Transmission Date: 20120825
  Serious: No
  Sender: FDA-Public Use
  Company Number: US-TEVA-332813USA

PATIENT
  Sex: Female

DRUGS (12)
  1. ALPRAZOLAM [Concomitant]
  2. FLAVOXATE HYDROCHLORIDE [Concomitant]
  3. ALBUTEROL [Concomitant]
  4. MODAFINIL [Concomitant]
  5. COPAXONE [Suspect]
     Indication: MULTIPLE SCLEROSIS
     Dosage: 20 MILLIGRAM;
     Route: 058
     Dates: start: 20120101, end: 20120401
  6. GABAPENTIN [Concomitant]
  7. BACLOFEN [Concomitant]
  8. DONEPEZIL HCL [Concomitant]
  9. VICODIN [Concomitant]
  10. L-TYROSINE [Concomitant]
  11. LISINOPRIL [Concomitant]
  12. AMLODIPINE [Concomitant]

REACTIONS (7)
  - MYALGIA [None]
  - HEADACHE [None]
  - BACK PAIN [None]
  - INJECTION SITE URTICARIA [None]
  - RENAL PAIN [None]
  - HEPATIC PAIN [None]
  - MUSCLE SPASMS [None]
